FAERS Safety Report 12231979 (Version 2)
Quarter: 2016Q2

REPORT INFORMATION
  Report Type: Report from Study
  Country: CO (occurrence: CO)
  Receive Date: 20160401
  Receipt Date: 20160407
  Transmission Date: 20160815
  Serious: Yes (Hospitalization)
  Sender: FDA-Public Use
  Company Number: CO-JNJFOC-20160327244

PATIENT
  Age: 34 Year
  Sex: Male
  Weight: 51 kg

DRUGS (2)
  1. INVEGA SUSTENNA [Suspect]
     Active Substance: PALIPERIDONE PALMITATE
     Indication: SCHIZOPHRENIA
     Route: 030
     Dates: start: 20160211
  2. INVEGA SUSTENNA [Suspect]
     Active Substance: PALIPERIDONE PALMITATE
     Indication: SCHIZOPHRENIA
     Route: 030
     Dates: start: 20160225

REACTIONS (7)
  - Drug prescribing error [Unknown]
  - Off label use [Unknown]
  - Insomnia [Not Recovered/Not Resolved]
  - Restlessness [Not Recovered/Not Resolved]
  - Anxiety [Not Recovered/Not Resolved]
  - Inappropriate schedule of drug administration [Unknown]
  - Aggression [Not Recovered/Not Resolved]

NARRATIVE: CASE EVENT DATE: 2016
